FAERS Safety Report 19279139 (Version 4)
Quarter: 2021Q3

REPORT INFORMATION
  Report Type: Spontaneous
  Country: US (occurrence: US)
  Receive Date: 20210520
  Receipt Date: 20210712
  Transmission Date: 20211014
  Serious: Yes (Other)
  Sender: FDA-Public Use
  Company Number: US-JNJFOC-20210532931

PATIENT
  Age: 76 Year
  Sex: Male

DRUGS (12)
  1. ZYTIGA [Suspect]
     Active Substance: ABIRATERONE ACETATE
     Indication: PROSTATE CANCER
     Dosage: 4 TABLETS EACH MORNING
     Route: 048
     Dates: start: 202012
  2. VITAMIN B12 [Concomitant]
     Active Substance: CYANOCOBALAMIN
     Indication: IMMUNE ENHANCEMENT THERAPY
     Route: 065
  3. BIOTININ [Concomitant]
     Indication: IMMUNE ENHANCEMENT THERAPY
     Route: 065
  4. PLAVIX [Concomitant]
     Active Substance: CLOPIDOGREL BISULFATE
     Indication: ANTICOAGULANT THERAPY
     Route: 065
     Dates: start: 2006
  5. VITAMINE C [Concomitant]
     Active Substance: ASCORBIC ACID
     Indication: IMMUNE ENHANCEMENT THERAPY
     Route: 065
  6. SELENIUM [Concomitant]
     Active Substance: SELENIUM
     Indication: IMMUNE ENHANCEMENT THERAPY
     Route: 065
  7. PREDNISONE. [Concomitant]
     Active Substance: PREDNISONE
     Indication: PROPHYLAXIS
     Route: 065
     Dates: start: 202012
  8. VITAMIN E [Concomitant]
     Active Substance: .ALPHA.-TOCOPHEROL
     Indication: IMMUNE ENHANCEMENT THERAPY
     Route: 065
  9. COENZYME Q10 [Concomitant]
     Active Substance: DIETARY SUPPLEMENT\UBIDECARENONE
     Indication: IMMUNE ENHANCEMENT THERAPY
     Route: 065
  10. ZYTIGA [Suspect]
     Active Substance: ABIRATERONE ACETATE
     Route: 048
     Dates: start: 20210323, end: 20210503
  11. RAMIPRIL. [Concomitant]
     Active Substance: RAMIPRIL
     Indication: HYPERTENSION
     Route: 065
     Dates: start: 1990
  12. VITAMINUM C [Concomitant]
     Indication: IMMUNE ENHANCEMENT THERAPY
     Route: 065

REACTIONS (3)
  - Drug ineffective [Unknown]
  - COVID-19 [Recovered/Resolved]
  - Prostate cancer [Recovering/Resolving]

NARRATIVE: CASE EVENT DATE: 202012
